FAERS Safety Report 15771641 (Version 2)
Quarter: 2019Q3

REPORT INFORMATION
  Report Type: Spontaneous
  Country: US (occurrence: US)
  Receive Date: 20181228
  Receipt Date: 20190708
  Transmission Date: 20191004
  Serious: Yes (Death)
  Sender: FDA-Public Use
  Company Number: US-SA-2018SA396204

PATIENT
  Age: 46 Year
  Sex: Male

DRUGS (2)
  1. DUPIXENT [Suspect]
     Active Substance: DUPILUMAB
     Indication: DERMATITIS ATOPIC
     Dosage: 600 UNK, 1X
     Route: 058
     Dates: start: 20181204, end: 20181204
  2. DUPIXENT [Suspect]
     Active Substance: DUPILUMAB
     Dosage: 300 MG, QOW
     Route: 058

REACTIONS (2)
  - Renal pain [Fatal]
  - Arthralgia [Unknown]

NARRATIVE: CASE EVENT DATE: 20181211
